FAERS Safety Report 9042719 (Version 1)
Quarter: 2013Q1

REPORT INFORMATION
  Report Type: Report from Study
  Country: US (occurrence: US)
  Receive Date: 20130129
  Receipt Date: 20130129
  Transmission Date: 20140127
  Serious: No
  Sender: FDA-Public Use
  Company Number: US-ABBOTT-12P-163-0908624-00

PATIENT
  Age: 55 Year
  Sex: Female

DRUGS (3)
  1. HUMIRA 40 MG/0.8 ML PEN [Suspect]
     Indication: PSORIASIS
     Dates: start: 201012
  2. HUMIRA 40 MG/0.8 ML PEN [Suspect]
     Dates: start: 20120214
  3. UNKNOWN MEDICATIONS [Concomitant]
     Indication: PRODUCT USED FOR UNKNOWN INDICATION

REACTIONS (4)
  - Arthralgia [Recovering/Resolving]
  - Incorrect drug administration duration [Recovering/Resolving]
  - Joint stiffness [Recovering/Resolving]
  - Joint crepitation [Recovering/Resolving]
